FAERS Safety Report 9731121 (Version 2)
Quarter: 2013Q4

REPORT INFORMATION
  Report Type: Spontaneous
  Country: US (occurrence: US)
  Receive Date: 20131205
  Receipt Date: 20131211
  Transmission Date: 20140711
  Serious: No
  Sender: FDA-Public Use
  Company Number: US-009507513-1311USA011562

PATIENT
  Age: 57 Year
  Sex: Male

DRUGS (2)
  1. PEGINTRON [Suspect]
     Indication: HEPATITIS C
     Dosage: 80 MICROGRAM, QW
     Route: 058
     Dates: start: 20131111
  2. REBETOL [Suspect]
     Dosage: UNK
     Route: 048

REACTIONS (2)
  - Influenza like illness [Unknown]
  - Fatigue [Unknown]
